FAERS Safety Report 19120265 (Version 2)
Quarter: 2021Q2

REPORT INFORMATION
  Report Type: Spontaneous
  Country: JP (occurrence: JP)
  Receive Date: 20210412
  Receipt Date: 20210521
  Transmission Date: 20210717
  Serious: Yes (Hospitalization)
  Sender: FDA-Public Use
  Company Number: JP-ROCHE-2807361

PATIENT
  Age: 11 Year
  Sex: Male
  Weight: 40.1 kg

DRUGS (7)
  1. CELLCEPT [Suspect]
     Active Substance: MYCOPHENOLATE MOFETIL\MYCOPHENOLATE MOFETIL HYDROCHLORIDE
     Indication: NEPHROTIC SYNDROME
     Route: 048
     Dates: start: 20190508, end: 20190611
  2. BACTRAMIN [Suspect]
     Active Substance: SULFAMETHOXAZOLE\TRIMETHOPRIM
     Indication: PRODUCT USED FOR UNKNOWN INDICATION
     Route: 048
     Dates: start: 20180808
  3. FAMOTIDINE OD [Concomitant]
     Active Substance: FAMOTIDINE
     Dosage: AFTER BREAKFAST
     Route: 048
     Dates: start: 20201111
  4. PREDNISOLONE. [Concomitant]
     Active Substance: PREDNISOLONE
     Dosage: AFTER BREAKFAST, LUNCH, AND DINNER
     Route: 048
     Dates: start: 20180613
  5. ALFAROL [Suspect]
     Active Substance: ALFACALCIDOL
     Indication: NEPHROTIC SYNDROME
     Route: 048
     Dates: start: 20110911, end: 20210302
  6. CELLCEPT [Suspect]
     Active Substance: MYCOPHENOLATE MOFETIL\MYCOPHENOLATE MOFETIL HYDROCHLORIDE
     Dosage: DOSE INTERVAL UNCERTAINTY
     Route: 048
     Dates: start: 20200212, end: 20210302
  7. CELLCEPT [Suspect]
     Active Substance: MYCOPHENOLATE MOFETIL\MYCOPHENOLATE MOFETIL HYDROCHLORIDE
     Dosage: DOSE INTERVAL UNCERTAINTY
     Route: 048
     Dates: start: 20190612, end: 20200211

REACTIONS (2)
  - Off label use [Unknown]
  - Hepatic function abnormal [Recovering/Resolving]

NARRATIVE: CASE EVENT DATE: 20210302
